FAERS Safety Report 13209816 (Version 2)
Quarter: 2017Q1

REPORT INFORMATION
  Report Type: Spontaneous
  Country: US (occurrence: US)
  Receive Date: 20170209
  Receipt Date: 20170301
  Transmission Date: 20170428
  Serious: Yes (Other)
  Sender: FDA-Public Use
  Company Number: US-BAYER-2017-018396

PATIENT
  Age: 27 Year
  Sex: Female
  Weight: 90 kg

DRUGS (1)
  1. SKYLA [Suspect]
     Active Substance: LEVONORGESTREL
     Indication: CONTRACEPTION
     Dosage: 14 MCG/24HR, CONT
     Route: 015
     Dates: start: 20160516, end: 20170202

REACTIONS (8)
  - Bacterial vaginosis [None]
  - Amenorrhoea [None]
  - Genital haemorrhage [None]
  - Vaginal discharge [None]
  - Pregnancy with contraceptive device [None]
  - Abortion spontaneous [None]
  - Device ineffective [None]
  - Vaginal haemorrhage [None]

NARRATIVE: CASE EVENT DATE: 20170102
